FAERS Safety Report 12337082 (Version 1)
Quarter: 2016Q2

REPORT INFORMATION
  Report Type: Report from Study
  Country: CN (occurrence: CN)
  Receive Date: 20160505
  Receipt Date: 20160505
  Transmission Date: 20160815
  Serious: Yes (Other)
  Sender: FDA-Public Use
  Company Number: PHHY2016CN059337

PATIENT
  Age: 65 Year
  Sex: Female
  Weight: 72.6 kg

DRUGS (11)
  1. PALBOCICLIB [Suspect]
     Active Substance: PALBOCICLIB
     Indication: BREAST CANCER
     Dosage: 125 MG, ONCE DAILY, CYCLIC
     Route: 048
     Dates: start: 20151120, end: 20151231
  2. BICYCLOL [Concomitant]
     Active Substance: BICYCLOL
     Indication: PROPHYLAXIS
     Dosage: 50 MG, THREE TIMES DAILY
     Route: 048
     Dates: start: 20151231
  3. MAGNESIUM [Concomitant]
     Active Substance: MAGNESIUM
     Indication: PROPHYLAXIS
     Dosage: 100 MG, ONCE DAILY
     Route: 041
     Dates: start: 20160107, end: 20160121
  4. LETROZOLE. [Suspect]
     Active Substance: LETROZOLE
     Dosage: 2.5 MG, 1X/DAY
     Route: 048
     Dates: start: 20160203
  5. GLUTATHIONE [Concomitant]
     Active Substance: GLUTATHIONE
     Indication: PRODUCT USED FOR UNKNOWN INDICATION
     Dosage: 1200 MG, ONCE DAILY
     Route: 041
     Dates: start: 20160114, end: 20160128
  6. LETROZOLE. [Suspect]
     Active Substance: LETROZOLE
     Dosage: 2.5 MG, ONCE DAILY
     Route: 048
     Dates: start: 20160116, end: 20160122
  7. MAGNESIUM [Concomitant]
     Active Substance: MAGNESIUM
     Dosage: 200 MG, ONCE DAILY
     Route: 041
     Dates: start: 20160122, end: 20160128
  8. TIOPRONIN [Concomitant]
     Active Substance: TIOPRONIN
     Indication: PRODUCT USED FOR UNKNOWN INDICATION
     Dosage: 200 MG, ONCE DAILY
     Route: 042
     Dates: start: 20151231, end: 20160107
  9. PALBOCICLIB [Suspect]
     Active Substance: PALBOCICLIB
     Dosage: 100 MG, ONCE DAILY, CYCLIC
     Route: 048
     Dates: start: 20160116, end: 20160122
  10. LETROZOLE. [Suspect]
     Active Substance: LETROZOLE
     Indication: BREAST CANCER
     Dosage: 2.5 MG, ONCE DAILY
     Route: 048
     Dates: start: 20151120, end: 20151231
  11. PALBOCICLIB [Suspect]
     Active Substance: PALBOCICLIB
     Dosage: 75 MG, 1X/DAY
     Route: 048
     Dates: start: 20160216

REACTIONS (7)
  - Blood bilirubin increased [Unknown]
  - Liver injury [Recovered/Resolved]
  - Aspartate aminotransferase increased [Unknown]
  - Oedema peripheral [Unknown]
  - Alanine aminotransferase increased [Unknown]
  - Bilirubin conjugated increased [Unknown]
  - Gamma-glutamyltransferase increased [Unknown]

NARRATIVE: CASE EVENT DATE: 20151231
